FAERS Safety Report 5037552-7 (Version None)
Quarter: 2006Q2

REPORT INFORMATION
  Report Type: 
  Country: None (occurrence: None)
  Receive Date: 20060628
  Receipt Date: 20060419
  Transmission Date: 20061013
  Serious: Yes (Other)
  Sender: FDA-Public Use
  Company Number: US-GLAXOSMITHKLINE-A0602491A

PATIENT
  Age: 37 Year
  Sex: Female
  Weight: 60.9 kg

DRUGS (2)
  1. WELLBUTRIN XL [Suspect]
     Indication: DEPRESSION
     Dosage: 300MG PER DAY
     Route: 048
     Dates: start: 20060211, end: 20060215
  2. HORMONE PILL [Concomitant]

REACTIONS (10)
  - AMNESIA [None]
  - CYANOSIS [None]
  - DEREALISATION [None]
  - DISORIENTATION [None]
  - DRUG ADMINISTRATION ERROR [None]
  - FEAR [None]
  - GRAND MAL CONVULSION [None]
  - LOSS OF CONSCIOUSNESS [None]
  - MEDICATION ERROR [None]
  - OXYGEN SATURATION DECREASED [None]
